FAERS Safety Report 16835441 (Version 1)
Quarter: 2019Q3

REPORT INFORMATION
  Report Type: Spontaneous
  Country: US (occurrence: US)
  Receive Date: 20190920
  Receipt Date: 20190920
  Transmission Date: 20191005
  Serious: No
  Sender: FDA-Public Use
  Company Number: US-AMARIN PHARMA, INC.-2019AMR000073

PATIENT
  Age: 58 Year
  Sex: Male
  Weight: 118.04 kg

DRUGS (1)
  1. VASCEPA [Suspect]
     Active Substance: ICOSAPENT ETHYL
     Indication: BLOOD TRIGLYCERIDES INCREASED
     Route: 048
     Dates: start: 2018

REACTIONS (3)
  - Product colour issue [Unknown]
  - Product odour abnormal [Unknown]
  - Eructation [Unknown]

NARRATIVE: CASE EVENT DATE: 20190226
